FAERS Safety Report 14039256 (Version 1)
Quarter: 2017Q4

REPORT INFORMATION
  Report Type: Spontaneous
  Country: US (occurrence: US)
  Receive Date: 20171004
  Receipt Date: 20171004
  Transmission Date: 20180321
  Serious: Yes (Disabling)
  Sender: FDA-Public Use
  Company Number: None

PATIENT
  Age: 61 Year
  Sex: Female
  Weight: 62.1 kg

DRUGS (8)
  1. MULTIVITAMIN C [Concomitant]
  2. MULTIVITAMIN BODYBLOCK SPF 20 [Concomitant]
     Active Substance: AVOBENZONE\OCTINOXATE\OCTISALATE\OXYBENZONE
  3. OMEGA 3 [Concomitant]
     Active Substance: OMEGA-3 FATTY ACIDS
  4. MIRTAZAPINE 15MG [Suspect]
     Active Substance: MIRTAZAPINE
     Indication: SLEEP DISORDER
     Dosage: ?          QUANTITY:1 TABLET(S);?
     Route: 048
     Dates: start: 20170927
  5. AMBIEN [Concomitant]
     Active Substance: ZOLPIDEM TARTRATE
  6. CLONAZEPAM. [Concomitant]
     Active Substance: CLONAZEPAM
  7. MULTIVITAMIN E [Concomitant]
  8. MIRTAZAPINE 15MG [Suspect]
     Active Substance: MIRTAZAPINE
     Indication: DEPRESSION
     Dosage: ?          QUANTITY:1 TABLET(S);?
     Route: 048
     Dates: start: 20170927

REACTIONS (4)
  - Aggression [None]
  - Heart rate increased [None]
  - Insomnia [None]
  - Constipation [None]

NARRATIVE: CASE EVENT DATE: 20170930
